FAERS Safety Report 8451172-3 (Version None)
Quarter: 2012Q2

REPORT INFORMATION
  Report Type: 
  Country: None (occurrence: None)
  Receive Date: 20120620
  Receipt Date: 20120224
  Transmission Date: 20120825
  Serious: No
  Sender: FDA-Public Use
  Company Number: US-VERTEX PHARMACEUTICALS INC.-AE-2011-003087

PATIENT
  Sex: Male
  Weight: 111.23 kg

DRUGS (4)
  1. PEGASYS [Concomitant]
     Indication: HEPATITIS C
     Route: 058
     Dates: start: 20110908
  2. XANAX [Concomitant]
     Indication: ANXIETY
     Route: 048
  3. INCIVEK [Suspect]
     Indication: HEPATITIS C
     Route: 048
     Dates: start: 20110908
  4. RIBASPHERE [Concomitant]
     Indication: HEPATITIS C
     Route: 048
     Dates: start: 20110908

REACTIONS (4)
  - FATIGUE [None]
  - DRUG DOSE OMISSION [None]
  - FEELING ABNORMAL [None]
  - PYREXIA [None]
